FAERS Safety Report 8791328 (Version 1)
Quarter: 2012Q4

REPORT INFORMATION
  Report Type: 
  Country: US (occurrence: None)
  Receive Date: 20120911
  Receipt Date: 20120911
  Transmission Date: 20130627
  Serious: Yes (Other)
  Sender: FDA-Public Use
  Company Number: FK201202593

PATIENT
  Age: 60 Year
  Sex: Female

DRUGS (2)
  1. CARBOPLATIN [Suspect]
     Dosage: AUC 6, Intravenous (not specified)
     Route: 042
  2. TRIENTINE [Suspect]
     Dosage: 500 mg, 4 in 1 D, Oral
     Route: 048

REACTIONS (3)
  - Bone marrow failure [None]
  - Sideroblastic anaemia [None]
  - Vaginal haemorrhage [None]
